FAERS Safety Report 7556077-8 (Version None)
Quarter: 2011Q2

REPORT INFORMATION
  Report Type: 
  Country: None (occurrence: None)
  Receive Date: 20110620
  Receipt Date: 20110613
  Transmission Date: 20111010
  Serious: No
  Sender: FDA-Public Use
  Company Number: US-BIOGENIDEC-2011BI012899

PATIENT
  Age: 51 Year
  Sex: Female

DRUGS (1)
  1. TYSABRI [Suspect]
     Indication: MULTIPLE SCLEROSIS
     Route: 042
     Dates: start: 20110208

REACTIONS (6)
  - DIZZINESS [None]
  - COGNITIVE DISORDER [None]
  - PYREXIA [None]
  - CHILLS [None]
  - SPEECH DISORDER [None]
  - GAIT DISTURBANCE [None]
